FAERS Safety Report 18180880 (Version 1)
Quarter: 2020Q3

REPORT INFORMATION
  Report Type: Spontaneous
  Country: US (occurrence: US)
  Receive Date: 20200820
  Receipt Date: 20200820
  Transmission Date: 20201103
  Serious: No
  Sender: FDA-Public Use
  Company Number: None

PATIENT
  Sex: Female

DRUGS (1)
  1. HUMIRA [Suspect]
     Active Substance: ADALIMUMAB
     Indication: RHEUMATOID ARTHRITIS
     Dosage: ?          OTHER FREQUENCY:1SYREVERY14DAYS ;?
     Route: 058
     Dates: start: 201903

REACTIONS (3)
  - Injection site urticaria [None]
  - Injection site pruritus [None]
  - Injection site swelling [None]
